FAERS Safety Report 4390472-3 (Version None)
Quarter: 2004Q2

REPORT INFORMATION
  Report Type: 
  Country: None (occurrence: None)
  Receive Date: 20040630
  Receipt Date: 20040622
  Transmission Date: 20050107
  Serious: Yes (Hospitalization)
  Sender: FDA-Public Use
  Company Number: 2004UW12835

PATIENT
  Age: 44 Year
  Sex: Male
  Weight: 156.0374 kg

DRUGS (2)
  1. IRESSA [Suspect]
     Indication: NON-SMALL CELL LUNG CANCER
     Dosage: 250 MG QD PO
     Route: 048
     Dates: start: 20030609, end: 20031020
  2. CELECOXIB [Suspect]
     Indication: NON-SMALL CELL LUNG CANCER
     Dosage: 200 MG BID PO
     Route: 048
     Dates: start: 20030609, end: 20031020

REACTIONS (5)
  - BRAIN NEOPLASM [None]
  - DISEASE PROGRESSION [None]
  - HEADACHE [None]
  - NAUSEA [None]
  - VOMITING [None]
